FAERS Safety Report 19788910 (Version 3)
Quarter: 2022Q3

REPORT INFORMATION
  Report Type: Spontaneous
  Country: CN (occurrence: CN)
  Receive Date: 20210904
  Receipt Date: 20220809
  Transmission Date: 20221027
  Serious: Yes (Other)
  Sender: FDA-Public Use
  Company Number: NVSC2021CN193681

PATIENT

DRUGS (6)
  1. ENTRESTO [Suspect]
     Active Substance: SACUBITRIL\VALSARTAN
     Indication: Hypertension
     Dosage: 100 MG, BID (ON 01 MAY)
     Route: 065
  2. CLONIDINE [Concomitant]
     Active Substance: CLONIDINE
     Indication: Product used for unknown indication
     Dosage: 75 UG, TID
     Route: 065
     Dates: start: 20210501
  3. DOXAZOSIN MESYLATE [Concomitant]
     Active Substance: DOXAZOSIN MESYLATE
     Indication: Product used for unknown indication
     Dosage: 4 MG, QN
     Route: 065
     Dates: start: 20210501
  4. NIFEDIPINE [Concomitant]
     Active Substance: NIFEDIPINE
     Indication: Product used for unknown indication
     Dosage: 40 MG, Q8H (SUSTAINED-RELEASE TABLETS )
     Route: 048
     Dates: start: 20210501
  5. JIN LUO [Concomitant]
     Indication: Product used for unknown indication
     Dosage: 10 MG, BID
     Route: 065
     Dates: start: 20210501
  6. ZE TONG [Concomitant]
     Indication: Polyuria
     Dosage: 20 MG, QD
     Route: 065

REACTIONS (7)
  - Renal arteriosclerosis [Unknown]
  - Antiphospholipid antibodies negative [Unknown]
  - Tachypnoea [Recovering/Resolving]
  - Obesity [Unknown]
  - Chest discomfort [Recovering/Resolving]
  - Blood pressure decreased [Unknown]
  - Ejection fraction decreased [Unknown]
